FAERS Safety Report 7366331-0 (Version None)
Quarter: 2011Q1

REPORT INFORMATION
  Report Type: 
  Country: None (occurrence: None)
  Receive Date: 20110225
  Receipt Date: 20101123
  Transmission Date: 20110831
  Serious: Yes (Hospitalization)
  Sender: FDA-Public Use
  Company Number: 318936

PATIENT
  Age: 49 Year
  Sex: Male
  Weight: 124.7 kg

DRUGS (6)
  1. CLONIDINE HCL (CLONIDICINE HYDROCHLORIDE) [Concomitant]
  2. METFORMIN HCL [Concomitant]
  3. DIOVAN HCT [Concomitant]
  4. GLIPIZIDE [Concomitant]
  5. VICTOZA [Suspect]
     Indication: TYPE 2 DIABETES MELLITUS
     Dosage: 0.6 MG, QD, SUBCUTANEOUS, 1.2 MG, QD, SUBCUTANEOUS
     Route: 058
     Dates: start: 20101112, end: 20101116
  6. VICTOZA [Suspect]
     Indication: TYPE 2 DIABETES MELLITUS
     Dosage: 0.6 MG, QD, SUBCUTANEOUS, 1.2 MG, QD, SUBCUTANEOUS
     Route: 058
     Dates: start: 20101109, end: 20101112

REACTIONS (1)
  - PANCREATITIS [None]
